FAERS Safety Report 10938111 (Version 2)
Quarter: 2015Q2

REPORT INFORMATION
  Report Type: Spontaneous
  Country: US (occurrence: US)
  Receive Date: 20150321
  Receipt Date: 20150525
  Transmission Date: 20150821
  Serious: No
  Sender: FDA-Public Use
  Company Number: US-JNJFOC-20120708336

PATIENT
  Sex: Female
  Weight: 77.11 kg

DRUGS (5)
  1. LEVOTHROID [Concomitant]
     Active Substance: LEVOTHYROXINE SODIUM
     Indication: THYROID DISORDER
     Route: 048
  2. SULFUR. [Concomitant]
     Active Substance: SULFUR
     Indication: PSORIASIS
     Route: 061
     Dates: start: 201104
  3. STELARA [Suspect]
     Active Substance: USTEKINUMAB
     Indication: PSORIASIS
     Route: 058
     Dates: start: 201004, end: 201104
  4. ESTRADIOL. [Concomitant]
     Active Substance: ESTRADIOL
     Indication: NUTRITIONAL SUPPLEMENTATION
     Route: 048
  5. METHOTREXATE [Concomitant]
     Active Substance: METHOTREXATE
     Indication: PSORIASIS
     Route: 065

REACTIONS (1)
  - Pruritus [Not Recovered/Not Resolved]
